FAERS Safety Report 13125751 (Version 2)
Quarter: 2017Q1

REPORT INFORMATION
  Report Type: Spontaneous
  Country: DE (occurrence: DE)
  Receive Date: 20170118
  Receipt Date: 20170131
  Transmission Date: 20170428
  Serious: Yes (Hospitalization, Disabling)
  Sender: FDA-Public Use
  Company Number: DE-MERCK KGAA-1062113

PATIENT
  Age: 65 Year
  Sex: Male
  Weight: 80 kg

DRUGS (8)
  1. CONCOR [Suspect]
     Active Substance: BISOPROLOL FUMARATE
  2. CONCOR [Suspect]
     Active Substance: BISOPROLOL FUMARATE
  3. XARELTO [Concomitant]
     Active Substance: RIVAROXABAN
     Dates: start: 201310
  4. NOVOTHYROX [Suspect]
     Active Substance: LEVOTHYROXINE SODIUM
  5. NOVOTHYROX [Suspect]
     Active Substance: LEVOTHYROXINE SODIUM
     Indication: HYPOTHYROIDISM
  6. CONCOR [Suspect]
     Active Substance: BISOPROLOL FUMARATE
     Dates: start: 1995, end: 20170110
  7. TAMBOCOR [Concomitant]
     Active Substance: FLECAINIDE ACETATE
  8. FLECAINIDE [Concomitant]
     Active Substance: FLECAINIDE

REACTIONS (2)
  - Arrhythmia [Not Recovered/Not Resolved]
  - Atrial fibrillation [Not Recovered/Not Resolved]

NARRATIVE: CASE EVENT DATE: 20060607
